FAERS Safety Report 4432160-0 (Version None)
Quarter: 2004Q3

REPORT INFORMATION
  Report Type: 
  Country: None (occurrence: None)
  Receive Date: 20040820
  Receipt Date: 20040810
  Transmission Date: 20050211
  Serious: Yes (Death, Hospitalization)
  Sender: FDA-Public Use
  Company Number: 2004219710JP

PATIENT
  Age: 40 Year
  Sex: Female

DRUGS (2)
  1. HYSRON-H200(MEDROXYPROGESTERONE ACETATE) TABLET, 100-500MG [Suspect]
     Indication: ENDOMETRIAL HYPERPLASIA
     Dosage: 600 MG, QD, ORAL  : 1200 MG, QD, ORAL
     Route: 048
     Dates: start: 19940801, end: 19941101
  2. HYSRON-H200(MEDROXYPROGESTERONE ACETATE) TABLET, 100-500MG [Suspect]
     Indication: ENDOMETRIAL HYPERPLASIA
     Dosage: 600 MG, QD, ORAL  : 1200 MG, QD, ORAL
     Route: 048
     Dates: start: 19940601, end: 20040801

REACTIONS (3)
  - DISEASE RECURRENCE [None]
  - ENDOMETRIAL CANCER [None]
  - GENITAL HAEMORRHAGE [None]
